FAERS Safety Report 24631066 (Version 1)
Quarter: 2024Q4

REPORT INFORMATION
  Report Type: Spontaneous
  Country: US (occurrence: None)
  Receive Date: 20241117
  Receipt Date: 20241117
  Transmission Date: 20250114
  Serious: Yes (Other)
  Sender: Public
  Company Number: None

PATIENT
  Age: 70 Year
  Sex: Male
  Weight: 86.4 kg

DRUGS (1)
  1. ATORVASTATIN CALCIUM [Suspect]
     Active Substance: ATORVASTATIN CALCIUM
     Indication: Blood cholesterol increased
     Dosage: 30 TABLET DAILY ORAL
     Route: 048

REACTIONS (4)
  - Dizziness [None]
  - Palpitations [None]
  - Blood pressure increased [None]
  - Product use complaint [None]

NARRATIVE: CASE EVENT DATE: 20241104
